FAERS Safety Report 9910958 (Version 3)
Quarter: 2015Q3

REPORT INFORMATION
  Report Type: Spontaneous
  Country: US (occurrence: US)
  Receive Date: 20140219
  Receipt Date: 20150811
  Transmission Date: 20151125
  Serious: No
  Sender: FDA-Public Use
  Company Number: US-GILEAD-2012-0052612

PATIENT
  Age: 66 Year
  Sex: Female

DRUGS (3)
  1. VENTAVIS [Concomitant]
     Active Substance: ILOPROST
  2. LETAIRIS [Suspect]
     Active Substance: AMBRISENTAN
     Indication: PULMONARY FIBROSIS
  3. LETAIRIS [Suspect]
     Active Substance: AMBRISENTAN
     Indication: PULMONARY HYPERTENSION
     Dosage: 10 MG, UNK
     Route: 048
     Dates: start: 20110926

REACTIONS (6)
  - Headache [Unknown]
  - Pyrexia [Unknown]
  - Hypersensitivity [Unknown]
  - Epistaxis [Unknown]
  - Productive cough [Unknown]
  - Unevaluable event [Unknown]

NARRATIVE: CASE EVENT DATE: 20120319
